FAERS Safety Report 10020409 (Version 1)
Quarter: 2014Q1

REPORT INFORMATION
  Report Type: Spontaneous
  Country: US (occurrence: US)
  Receive Date: 20140319
  Receipt Date: 20140319
  Transmission Date: 20141002
  Serious: No
  Sender: FDA-Public Use
  Company Number: US-BIOGENIDEC-2014BI022451

PATIENT
  Sex: Female

DRUGS (8)
  1. TECFIDERA [Suspect]
     Indication: MULTIPLE SCLEROSIS
     Route: 048
     Dates: start: 201312
  2. GABAPENTIN [Concomitant]
  3. TIZANIDINE HCL [Concomitant]
  4. LEXAPRO [Concomitant]
  5. VITAMIN B12 [Concomitant]
  6. VITAMIN B-100 COMPLEX [Concomitant]
  7. CVS VITAMIN D [Concomitant]
  8. LORTAB [Concomitant]

REACTIONS (3)
  - Ligament disorder [Unknown]
  - Musculoskeletal stiffness [Unknown]
  - Flushing [Unknown]
